FAERS Safety Report 18300689 (Version 1)
Quarter: 2020Q3

REPORT INFORMATION
  Report Type: Spontaneous
  Country: GB (occurrence: GB)
  Receive Date: 20200923
  Receipt Date: 20200923
  Transmission Date: 20201103
  Serious: Yes (Other)
  Sender: FDA-Public Use
  Company Number: GB-SA-2020SA258482

PATIENT

DRUGS (1)
  1. LEMTRADA [Suspect]
     Active Substance: ALEMTUZUMAB
     Dosage: UNK
     Route: 041
     Dates: end: 201911

REACTIONS (4)
  - Skin discolouration [Unknown]
  - Menstruation irregular [Unknown]
  - Anxiety [Unknown]
  - Immune thrombocytopenia [Unknown]
